FAERS Safety Report 6337690-2 (Version None)
Quarter: 2009Q3

REPORT INFORMATION
  Report Type: 
  Country: None (occurrence: None)
  Receive Date: 20090902
  Receipt Date: 20090403
  Transmission Date: 20100115
  Serious: No
  Sender: FDA-Public Use
  Company Number: US-BAYER-200823786NA

PATIENT
  Age: 11 Year
  Sex: Male
  Weight: 29 kg

DRUGS (1)
  1. MAGNEVIST [Suspect]
     Indication: NUCLEAR MAGNETIC RESONANCE IMAGING BRAIN
     Dosage: TOTAL DAILY DOSE: 5 ML
     Route: 042
     Dates: start: 20080314, end: 20080314

REACTIONS (1)
  - ERYTHEMA [None]
